FAERS Safety Report 17534906 (Version 1)
Quarter: 2020Q1

REPORT INFORMATION
  Report Type: Spontaneous
  Country: IL (occurrence: IL)
  Receive Date: 20200312
  Receipt Date: 20200312
  Transmission Date: 20200409
  Serious: Yes (Death)
  Sender: FDA-Public Use
  Company Number: IL-FRESENIUS KABI-FK202002479

PATIENT
  Age: 52 Year
  Sex: Male

DRUGS (4)
  1. VORICONAZOLE (MANUFACTURER UNKNOWN) [Suspect]
     Active Substance: VORICONAZOLE
     Indication: MUCORMYCOSIS
     Dosage: UNKNOWN
     Route: 065
  2. POSACONAZOLE [Suspect]
     Active Substance: POSACONAZOLE
     Indication: MUCORMYCOSIS
     Dosage: UNKNOWN
     Route: 048
  3. CASPOFUNGIN (MANUFACTURER UNKNOWN) [Suspect]
     Active Substance: CASPOFUNGIN
     Indication: MUCORMYCOSIS
     Dosage: UNKNOWN
     Route: 065
  4. AMPHOTERICIN B. [Suspect]
     Active Substance: AMPHOTERICIN B
     Indication: MUCORMYCOSIS
     Dosage: UNKNOWN
     Route: 065

REACTIONS (1)
  - Aspergillus infection [Fatal]
